FAERS Safety Report 24575985 (Version 1)
Quarter: 2024Q4

REPORT INFORMATION
  Report Type: Spontaneous
  Country: IT (occurrence: IT)
  Receive Date: 20241104
  Receipt Date: 20241104
  Transmission Date: 20250114
  Serious: Yes (Hospitalization, Other)
  Sender: SANDOZ
  Company Number: IT-SANDOZ-SDZ2024IT091050

PATIENT
  Age: 45 Year
  Sex: Female

DRUGS (5)
  1. OLANZAPINE [Suspect]
     Active Substance: OLANZAPINE
     Indication: Huntington^s disease
     Dosage: 5 MG, BID
     Route: 065
     Dates: start: 2022
  2. QUETIAPINE [Suspect]
     Active Substance: QUETIAPINE
     Indication: Huntington^s disease
     Dosage: 25 MG, QD
     Route: 065
  3. QUETIAPINE [Suspect]
     Active Substance: QUETIAPINE
     Dosage: 50 MG, QD
     Route: 065
     Dates: start: 2022
  4. VALPROATE [Suspect]
     Active Substance: VALPROIC ACID
     Indication: Huntington^s disease
     Dosage: 200 MG, BID
     Route: 065
     Dates: start: 2022
  5. ZOLPIDEM [Suspect]
     Active Substance: ZOLPIDEM TARTRATE
     Indication: Huntington^s disease
     Dosage: 10 MG, QD
     Route: 065
     Dates: start: 2022

REACTIONS (2)
  - Neuroleptic malignant syndrome [Unknown]
  - Product use in unapproved indication [Unknown]
